FAERS Safety Report 18408657 (Version 1)
Quarter: 2020Q4

REPORT INFORMATION
  Report Type: Spontaneous
  Country: US (occurrence: US)
  Receive Date: 20201020
  Receipt Date: 20201020
  Transmission Date: 20210114
  Serious: No
  Sender: FDA-Public Use
  Company Number: US-CELGENEUS-USA-20201004402

PATIENT
  Sex: Female

DRUGS (1)
  1. REBLOZYL [Suspect]
     Active Substance: LUSPATERCEPT-AAMT
     Indication: THALASSAEMIA BETA
     Dosage: UNKNOWN
     Route: 058
     Dates: start: 20200702, end: 20201001

REACTIONS (4)
  - Pain in jaw [Unknown]
  - Blood pressure increased [Unknown]
  - Hypoaesthesia teeth [Unknown]
  - Bone pain [Unknown]

NARRATIVE: CASE EVENT DATE: 2020
